FAERS Safety Report 6607485-0 (Version None)
Quarter: 2010Q1

REPORT INFORMATION
  Report Type: 
  Country: None (occurrence: None)
  Receive Date: 20100301
  Receipt Date: 20100224
  Transmission Date: 20100710
  Serious: Yes (Life-Threatening)
  Sender: FDA-Public Use
  Company Number: JP-EISAI INC.-E2090-00373-SPO-JP

PATIENT
  Sex: Male

DRUGS (4)
  1. EXCEGRAN [Suspect]
     Indication: EPILEPSY
     Route: 048
     Dates: start: 20070502, end: 20070609
  2. TEGRETOL [Suspect]
     Indication: EPILEPSY
     Route: 048
     Dates: start: 20070530, end: 20070603
  3. PASETOCIN [Suspect]
     Indication: PHARYNGITIS
     Route: 048
     Dates: start: 20070603, end: 20070603
  4. PASETOCIN [Suspect]
     Indication: LARYNGITIS

REACTIONS (2)
  - DRUG RASH WITH EOSINOPHILIA AND SYSTEMIC SYMPTOMS [None]
  - TOXIC EPIDERMAL NECROLYSIS [None]
